FAERS Safety Report 18001085 (Version 2)
Quarter: 2020Q3

REPORT INFORMATION
  Report Type: Spontaneous
  Country: CA (occurrence: CA)
  Receive Date: 20200709
  Receipt Date: 20200821
  Transmission Date: 20201103
  Serious: Yes (Life-Threatening, Hospitalization, Other)
  Sender: FDA-Public Use
  Company Number: CA-TEVA-2020-CA-1797740

PATIENT
  Age: 6 Year
  Sex: Female
  Weight: 19 kg

DRUGS (41)
  1. BUSULFAN. [Suspect]
     Active Substance: BUSULFAN
     Indication: STEM CELL TRANSPLANT
     Route: 042
  2. ACETAMINOPHEN. [Concomitant]
     Active Substance: ACETAMINOPHEN
  3. GANCICLOVIR. [Concomitant]
     Active Substance: GANCICLOVIR
  4. MAGNESIUM [Concomitant]
     Active Substance: MAGNESIUM
  5. METOCLOPRAMIDE. [Concomitant]
     Active Substance: METOCLOPRAMIDE
  6. BUSULFAN. [Suspect]
     Active Substance: BUSULFAN
     Route: 042
  7. DIPHENHYDRAMINE. [Concomitant]
     Active Substance: DIPHENHYDRAMINE
  8. LEVETIRACETAM. [Concomitant]
     Active Substance: LEVETIRACETAM
  9. METRONIDAZOLE. [Concomitant]
     Active Substance: METRONIDAZOLE
  10. TRIMETHOPRIM. [Concomitant]
     Active Substance: TRIMETHOPRIM
  11. MYCOPHENOLATE MOFETIL. [Suspect]
     Active Substance: MYCOPHENOLATE MOFETIL
     Route: 042
  12. AMLODIPINE [Concomitant]
     Active Substance: AMLODIPINE BESYLATE
  13. EPINEPHRINE. [Concomitant]
     Active Substance: EPINEPHRINE
  14. METHYLPREDNISOLONE NOS [Concomitant]
     Active Substance: METHYLPREDNISOLONE
  15. FLUDARABINE [Suspect]
     Active Substance: FLUDARABINE PHOSPHATE
     Indication: STEM CELL TRANSPLANT
     Route: 042
  16. MYCOPHENOLATE MOFETIL. [Suspect]
     Active Substance: MYCOPHENOLATE MOFETIL
     Indication: PROPHYLAXIS AGAINST GRAFT VERSUS HOST DISEASE
     Route: 042
  17. AMPHOTERICIN B. [Concomitant]
     Active Substance: AMPHOTERICIN B
  18. FUROSEMIDE. [Concomitant]
     Active Substance: FUROSEMIDE
  19. LORAZEPAM. [Concomitant]
     Active Substance: LORAZEPAM
  20. PIPERACILLIN AND TAZOBACTAM [Concomitant]
     Active Substance: PIPERACILLIN SODIUM\TAZOBACTAM SODIUM
  21. PREDNISONE. [Concomitant]
     Active Substance: PREDNISONE
  22. HEPARIN CALCIUM [Concomitant]
     Active Substance: HEPARIN CALCIUM
  23. BUSULFAN. [Suspect]
     Active Substance: BUSULFAN
     Route: 042
  24. CETIRIZINE [Concomitant]
     Active Substance: CETIRIZINE HYDROCHLORIDE
  25. CHLORHEXIDINE [Concomitant]
     Active Substance: CHLORHEXIDINE
  26. DIMENHYDRINATE. [Concomitant]
     Active Substance: DIMENHYDRINATE
  27. NIFEDIPINE. [Concomitant]
     Active Substance: NIFEDIPINE
  28. ONDANSETRON [Concomitant]
     Active Substance: ONDANSETRON
  29. MYCOPHENOLATE MOFETIL. [Suspect]
     Active Substance: MYCOPHENOLATE MOFETIL
     Indication: PROPHYLAXIS AGAINST GRAFT VERSUS HOST DISEASE
     Dosage: 1000 MILLIGRAM DAILY;
     Route: 048
  30. ACYCLOVIR. [Concomitant]
     Active Substance: ACYCLOVIR
  31. DEXAMETHASONE. [Concomitant]
     Active Substance: DEXAMETHASONE
  32. HYDROCORTISONE. [Concomitant]
     Active Substance: HYDROCORTISONE
  33. POLYETHYLENE GLYCOL [Concomitant]
     Active Substance: POLYETHYLENE GLYCOLS
  34. ANTI?THYMOCYTE GLOBULIN (RABBIT) NOS [Concomitant]
     Active Substance: LAPINE T-LYMPHOCYTE IMMUNE GLOBULIN
  35. RANITIDINE. [Concomitant]
     Active Substance: RANITIDINE
  36. SODIUM [Concomitant]
     Active Substance: SODIUM
  37. TOBRAMYCIN. [Concomitant]
     Active Substance: TOBRAMYCIN
  38. CALCIUM + VITAMIN D [Concomitant]
     Active Substance: CALCIUM\VITAMIN D
  39. CEFTAZIDIME. [Concomitant]
     Active Substance: CEFTAZIDIME
  40. CICLOSPORIN [Concomitant]
     Active Substance: CYCLOSPORINE
  41. VORICONAZOLE. [Concomitant]
     Active Substance: VORICONAZOLE

REACTIONS (2)
  - Aplastic anaemia [Recovered/Resolved]
  - Myelosuppression [Recovered/Resolved]
